FAERS Safety Report 13721378 (Version 7)
Quarter: 2017Q4

REPORT INFORMATION
  Report Type: Spontaneous
  Country: US (occurrence: US)
  Receive Date: 20170706
  Receipt Date: 20171122
  Transmission Date: 20180320
  Serious: Yes (Hospitalization, Congenital Anomaly, Other)
  Sender: FDA-Public Use
  Company Number: PHEH2017US020535

PATIENT
  Sex: Female

DRUGS (3)
  1. ZOFRAN [Suspect]
     Active Substance: ONDANSETRON HYDROCHLORIDE
     Indication: FOETAL EXPOSURE DURING PREGNANCY
     Route: 064
  2. ZOFRAN [Suspect]
     Active Substance: ONDANSETRON HYDROCHLORIDE
     Indication: FOETAL EXPOSURE DURING PREGNANCY
     Dosage: MOTHER^S DOSE: 4 MG, TID
     Route: 064
  3. ZOFRAN ODT [Suspect]
     Active Substance: ONDANSETRON HYDROCHLORIDE
     Indication: FOETAL EXPOSURE DURING PREGNANCY
     Dosage: MOTHER^S DOSE: 04 MG, UNK
     Route: 064

REACTIONS (37)
  - Developmental hip dysplasia [Unknown]
  - Heart disease congenital [Unknown]
  - Meningitis [Unknown]
  - Dehydration [Unknown]
  - Abdominal hernia [Unknown]
  - Tonsillitis [Unknown]
  - Ovarian cyst [Unknown]
  - Ear infection [Unknown]
  - Pharyngitis [Unknown]
  - Pulmonary valve stenosis congenital [Unknown]
  - Injury [Unknown]
  - Sinusitis [Unknown]
  - Gastroenteritis viral [Unknown]
  - Migraine [Unknown]
  - Viraemia [Unknown]
  - Bronchial hyperreactivity [Unknown]
  - Respiratory syncytial virus infection [Unknown]
  - Depression [Unknown]
  - Hypothyroidism [Unknown]
  - Headache [Unknown]
  - Pneumonia [Unknown]
  - Pneumonitis [Unknown]
  - Pulmonary oedema [Unknown]
  - Foetal exposure during pregnancy [Unknown]
  - Otitis media [Unknown]
  - Atelectasis [Unknown]
  - Meningitis viral [Unknown]
  - Cough [Unknown]
  - Pyrexia [Unknown]
  - Atrial septal defect [Unknown]
  - Umbilical hernia [Unknown]
  - Pneumothorax [Unknown]
  - Upper respiratory tract infection [Unknown]
  - Cardiac murmur [Unknown]
  - Asthma exercise induced [Unknown]
  - Road traffic accident [Unknown]
  - Asthma [Unknown]
